FAERS Safety Report 6895075-4 (Version None)
Quarter: 2010Q3

REPORT INFORMATION
  Report Type: 
  Country: None (occurrence: None)
  Receive Date: 20100727
  Receipt Date: 20100712
  Transmission Date: 20110219
  Serious: Yes (Life-Threatening)
  Sender: FDA-Public Use
  Company Number: 2010AP001364

PATIENT
  Age: 76 Year
  Sex: Male

DRUGS (2)
  1. SERTRALINE HYDROCHLORIDE [Suspect]
     Dosage: 100 MG;PO;QD
     Route: 048
     Dates: start: 20091127, end: 20091212
  2. SIMVASTATIN [Concomitant]

REACTIONS (4)
  - BLOOD CHOLESTEROL INCREASED [None]
  - DRUG DISPENSING ERROR [None]
  - EPILEPSY [None]
  - WRONG DRUG ADMINISTERED [None]
